FAERS Safety Report 11906805 (Version 1)
Quarter: 2016Q1

REPORT INFORMATION
  Report Type: Other
  Country: FR (occurrence: FR)
  Receive Date: 20160111
  Receipt Date: 20160111
  Transmission Date: 20160526
  Serious: Yes (Hospitalization, Other)
  Sender: FDA-Public Use
  Company Number: FR-MYLANLABS-2016M1000122

PATIENT

DRUGS (3)
  1. GENTAMYCINE [Suspect]
     Active Substance: GENTAMICIN
     Indication: ENCEPHALITIS
     Dosage: 400 MG, ONCE
     Route: 042
     Dates: start: 20151001, end: 20151001
  2. AMOXICILLINE                       /00249602/ [Suspect]
     Active Substance: AMOXICILLIN
     Indication: ENCEPHALITIS
     Dosage: 4 G, QID
     Route: 042
     Dates: start: 20151001, end: 20151001
  3. MYLAN-ACYCLOVIR [Suspect]
     Active Substance: ACYCLOVIR
     Indication: MENINGOENCEPHALITIS ADENOVIRAL
     Dosage: 700 MG, TID
     Route: 042
     Dates: start: 20151001

REACTIONS (3)
  - Renal tubular necrosis [Recovered/Resolved]
  - Acute kidney injury [Recovered/Resolved]
  - Maternal exposure during pregnancy [Unknown]

NARRATIVE: CASE EVENT DATE: 20151003
